FAERS Safety Report 5361666-5 (Version None)
Quarter: 2007Q2

REPORT INFORMATION
  Report Type: 
  Country: None (occurrence: None)
  Receive Date: 20070615
  Receipt Date: 20070615
  Transmission Date: 20071010
  Serious: No
  Sender: FDA-Public Use
  Company Number: None

PATIENT
  Age: 29 Year
  Sex: Female
  Weight: 56.6996 kg

DRUGS (1)
  1. BAKING SODA WHITENING SODIUM FLUORIDE 0.243% CREST [Suspect]
     Dosage: 3.8 OZ TUBE 2X DAILY DENTAL
     Route: 004
     Dates: start: 20070606, end: 20070613

REACTIONS (4)
  - BURNING SENSATION [None]
  - PARAESTHESIA [None]
  - RASH MACULO-PAPULAR [None]
  - STOMATITIS [None]
